FAERS Safety Report 10691034 (Version 1)
Quarter: 2015Q1

REPORT INFORMATION
  Report Type: Spontaneous
  Country: US (occurrence: None)
  Receive Date: 20150102
  Receipt Date: 20150102
  Transmission Date: 20150720
  Serious: Yes (Other)
  Sender: FDA-Public Use
  Company Number: 001852263A

PATIENT
  Age: 53 Year
  Sex: Female

DRUGS (6)
  1. PROPRANALOL [Concomitant]
  2. LAMICTAL [Concomitant]
     Active Substance: LAMOTRIGINE
  3. VITAMINS [Concomitant]
     Active Substance: VITAMINS
  4. MEANINGFUL BEAUTY CINDY CRAWFORD ANTIOXIDANT SPF 20 UVA/UVB [Suspect]
     Active Substance: AVOBENZONE\OCTINOXATE\OCTISALATE\OXYBENZONE
     Dosage: DERMAL, BID
     Route: 023
     Dates: start: 20140610, end: 20140611
  5. MEANINGFUL BEAUTY CINDY CRAWFORD SKIN BRIGHTENING DECOLLETE AND NECK TREATMENT SPF 15 [Suspect]
     Active Substance: AVOBENZONE\OCTINOXATE\OCTISALATE\OXYBENZONE
     Dosage: BID DERMAL
     Route: 023
     Dates: start: 20140610, end: 20140611
  6. OMEPRAZOLE. [Concomitant]
     Active Substance: OMEPRAZOLE

REACTIONS (5)
  - Mouth swelling [None]
  - Dyspnoea [None]
  - Eye swelling [None]
  - Throat tightness [None]
  - Swelling face [None]

NARRATIVE: CASE EVENT DATE: 20140612
